FAERS Safety Report 5725887-1 (Version None)
Quarter: 2008Q2

REPORT INFORMATION
  Report Type: 
  Country: None (occurrence: None)
  Receive Date: 20080502
  Receipt Date: 20080424
  Transmission Date: 20081010
  Serious: Yes (Other)
  Sender: FDA-Public Use
  Company Number: GB-RANBAXY-2008RR-14674

PATIENT

DRUGS (7)
  1. SERTRALINE HYDROCHLORIDE [Suspect]
     Indication: DEPRESSION
     Dosage: 100 MG, UNK
     Route: 064
     Dates: start: 20041109, end: 20050901
  2. SERTRALINE HYDROCHLORIDE [Suspect]
     Dosage: 100 MG, UNK
     Dates: start: 20051201, end: 20060201
  3. VENLAFAXINE 50MG TABLETS [Suspect]
     Indication: DEPRESSION
     Dosage: 100 MG, UNK
     Route: 064
     Dates: start: 20060201, end: 20060301
  4. VENLAFAXINE 50MG TABLETS [Suspect]
     Dosage: 150 MG, UNK
     Route: 064
     Dates: start: 20060301
  5. VENLAFAXINE 50MG TABLETS [Suspect]
     Dosage: 37.5 MG, UNK
     Route: 064
  6. AMOXICILLIN [Concomitant]
     Dosage: 250 MG, TID
  7. CEPHALEXIN [Concomitant]
     Dosage: 250 MG, QID

REACTIONS (5)
  - ABNORMAL PALMAR/PLANTAR CREASES [None]
  - EAR MALFORMATION [None]
  - FOETAL DAMAGE [None]
  - HEAD DEFORMITY [None]
  - POLYHYDRAMNIOS [None]
